FAERS Safety Report 7006635-4 (Version None)
Quarter: 2010Q3

REPORT INFORMATION
  Report Type: 
  Country: None (occurrence: None)
  Receive Date: 20100921
  Receipt Date: 20100921
  Transmission Date: 20110219
  Serious: Yes (Hospitalization)
  Sender: FDA-Public Use
  Company Number: None

PATIENT
  Age: 68 Year
  Sex: Male

DRUGS (2)
  1. ENOXAPARIN SODIUM [Suspect]
     Indication: AORTIC VALVE REPLACEMENT
     Dosage: 90 MG BID SQ
     Route: 058
     Dates: start: 20100901, end: 20100915
  2. WARFARIN SODIUM [Suspect]
     Indication: AORTIC VALVE REPLACEMENT

REACTIONS (1)
  - HAEMATOMA [None]
